FAERS Safety Report 21907114 (Version 1)
Quarter: 2023Q1

REPORT INFORMATION
  Report Type: Spontaneous
  Country: DE (occurrence: DE)
  Receive Date: 20230125
  Receipt Date: 20230125
  Transmission Date: 20230418
  Serious: Yes (Other)
  Sender: FDA-Public Use
  Company Number: DE-ALKEM LABORATORIES LIMITED-DE-ALKEM-2023-00445

PATIENT
  Age: 44 Year
  Sex: Female

DRUGS (1)
  1. FINGOLIMOD [Suspect]
     Active Substance: FINGOLIMOD
     Indication: Multiple sclerosis
     Dosage: 0.5 MILLIGRAM, EVERY 1 DAY (CAPSULE, HARD)
     Route: 065
     Dates: start: 2013

REACTIONS (13)
  - Prinzmetal angina [Unknown]
  - Multiple sclerosis relapse [Unknown]
  - Myocardial infarction [Unknown]
  - Lymphopenia [Recovering/Resolving]
  - Fatigue [Unknown]
  - Dermatitis [Unknown]
  - Cognitive disorder [Unknown]
  - Cardiac disorder [Unknown]
  - Hypoaesthesia [Unknown]
  - Gastrointestinal disorder [Unknown]
  - Memory impairment [Unknown]
  - Rebound effect [Unknown]
  - Coronavirus infection [Unknown]

NARRATIVE: CASE EVENT DATE: 20160101
